FAERS Safety Report 4347250-0 (Version None)
Quarter: 2004Q1

REPORT INFORMATION
  Report Type: 
  Country: None (occurrence: None)
  Receive Date: 20040325
  Receipt Date: 20040128
  Transmission Date: 20041129
  Serious: No
  Sender: FDA-Public Use
  Company Number: USA040157907

PATIENT
  Age: 72 Year
  Sex: Female

DRUGS (12)
  1. FORTEO [Suspect]
     Dates: start: 20030801
  2. SYNTHROID [Concomitant]
  3. VALIUM [Concomitant]
  4. ASPIRIN [Concomitant]
  5. CALCIUM [Concomitant]
  6. VIOXX [Concomitant]
  7. LEXAPRO [Concomitant]
  8. GLUCOSAMINE [Concomitant]
  9. CENESTIN (ESTROGENS CONJUGATED) [Concomitant]
  10. DETROL [Concomitant]
  11. PRILOSEC [Concomitant]
  12. LIPITOR [Concomitant]

REACTIONS (1)
  - EYE SWELLING [None]
